FAERS Safety Report 8341638-9 (Version None)
Quarter: 2012Q2

REPORT INFORMATION
  Report Type: 
  Country: None (occurrence: None)
  Receive Date: 20120507
  Receipt Date: 20120430
  Transmission Date: 20120825
  Serious: Yes (Other)
  Sender: FDA-Public Use
  Company Number: US-BAYER-2011-116920

PATIENT
  Age: 74 Year
  Sex: Male

DRUGS (3)
  1. NEXAVAR [Suspect]
     Indication: HEPATIC NEOPLASM MALIGNANT
     Dosage: 400 MG, BID
     Route: 048
     Dates: start: 20111101
  2. NEXAVAR [Suspect]
     Dosage: 400 MG, BID
     Route: 048
  3. NEXAVAR [Suspect]
     Dosage: 400 MG, BID
     Route: 048
     Dates: start: 20111101

REACTIONS (11)
  - GOUT [None]
  - BLISTER [None]
  - WEIGHT DECREASED [None]
  - STOMATITIS [None]
  - VOMITING [None]
  - ABDOMINAL PAIN UPPER [None]
  - FLATULENCE [None]
  - CARDIAC DISORDER [None]
  - HEPATIC NEOPLASM MALIGNANT [None]
  - ALOPECIA [None]
  - DIARRHOEA [None]
